FAERS Safety Report 6496468-X (Version None)
Quarter: 2009Q4

REPORT INFORMATION
  Report Type: 
  Country: None (occurrence: None)
  Receive Date: 20091210
  Receipt Date: 20091125
  Transmission Date: 20100525
  Serious: Yes (Other)
  Sender: FDA-Public Use
  Company Number: 8043677

PATIENT
  Sex: Male
  Weight: 60 kg

DRUGS (8)
  1. KEPPRA [Suspect]
     Dosage: (ORAL)
     Route: 048
  2. CYMBALTA [Suspect]
     Dosage: (ORAL)
     Route: 048
  3. GABAPENTIN [Suspect]
     Dosage: (400 ORAL)
     Route: 048
  4. MCP /00041901/ (MCP) [Suspect]
     Dosage: (ORAL)
     Route: 048
  5. MIRTAZAPINE [Suspect]
     Dosage: (15 ORAL)
     Route: 048
  6. SEROQUEL [Suspect]
     Dosage: (300 ORAL)
     Route: 048
  7. TEGRETAL (TEGRETAL) [Suspect]
     Dosage: (600 RETARD ORAL)
     Route: 048
  8. TILIDIN (TILIDIN) [Suspect]
     Dosage: (200/16 ORAL)
     Route: 048

REACTIONS (5)
  - DRUG TOXICITY [None]
  - GASTROINTESTINAL SOUNDS ABNORMAL [None]
  - MUSCLE CONTRACTIONS INVOLUNTARY [None]
  - SOMNOLENCE [None]
  - SUICIDE ATTEMPT [None]
